FAERS Safety Report 25514979 (Version 2)
Quarter: 2025Q3

REPORT INFORMATION
  Report Type: Report from Study
  Country: US (occurrence: US)
  Receive Date: 20250703
  Receipt Date: 20250813
  Transmission Date: 20251020
  Serious: Yes (Other)
  Sender: BAUSCH AND LOMB
  Company Number: US-BAUSCH-BL-2024-007954

PATIENT
  Age: 84 Year
  Sex: Female

DRUGS (16)
  1. MYSOLINE [Suspect]
     Active Substance: PRIMIDONE
     Indication: Epilepsy
     Dosage: ALSO TAKE 1 TAB DAILY AS NEEDED (SEIZURE INCREASED 1-3 TIMES MONTHLY)
     Route: 048
     Dates: start: 20230814, end: 20240424
  2. MYSOLINE [Suspect]
     Active Substance: PRIMIDONE
     Route: 048
  3. VITAMIN C [Suspect]
     Active Substance: ASCORBIC ACID
     Indication: Product used for unknown indication
     Route: 065
  4. TYLENOL [Concomitant]
     Active Substance: ACETAMINOPHEN
     Indication: Pain
     Dosage: AS NEEDED
     Route: 048
  5. ADVAIR HFA [Concomitant]
     Active Substance: FLUTICASONE PROPIONATE\SALMETEROL XINAFOATE
     Indication: Product used for unknown indication
     Dosage: 230-21 MCG/ACTUATION INHALER, 2 PUFFS BY MOUTH
     Route: 055
     Dates: start: 20231205, end: 20231213
  6. DEPAKOTE [Concomitant]
     Active Substance: DIVALPROEX SODIUM
     Indication: Epilepsy
     Dosage: DELAYED RELEASE, LOWER DOSE
     Route: 048
     Dates: start: 20230627, end: 20240212
  7. DEPAKOTE [Concomitant]
     Active Substance: DIVALPROEX SODIUM
     Dosage: DELAYED RELEASE, LOWER DOSE
     Route: 048
     Dates: start: 20230720, end: 20240301
  8. DIVALPROEX SODIUM [Concomitant]
     Active Substance: DIVALPROEX SODIUM
     Indication: Product used for unknown indication
     Dosage: EXTENDED-RELEASE TABLET
     Route: 048
     Dates: start: 20230708
  9. TRUSOPT [Concomitant]
     Active Substance: DORZOLAMIDE HYDROCHLORIDE
     Indication: Product used for unknown indication
     Dosage: 2 DROPS IN BOTH EYES
     Route: 047
     Dates: start: 20201004
  10. XALATAN [Concomitant]
     Active Substance: LATANOPROST
     Indication: Product used for unknown indication
     Dosage: BEDTIME
     Route: 047
  11. NITROSTAT [Concomitant]
     Active Substance: NITROGLYCERIN
     Indication: Chest pain
     Dosage: PLACE ONE TABLET UNDER THE TONGUE, EVERY 5 MINS AS NEEDED
     Route: 060
     Dates: start: 20220228
  12. PLAVIX [Concomitant]
     Active Substance: CLOPIDOGREL BISULFATE
     Indication: Product used for unknown indication
     Route: 048
     Dates: start: 20231102, end: 20240108
  13. SUDAFED [Concomitant]
     Active Substance: PSEUDOEPHEDRINE HYDROCHLORIDE
     Indication: Product used for unknown indication
     Route: 048
  14. ASPERCREME [Concomitant]
     Indication: Product used for unknown indication
     Route: 061
  15. DILANTIN [Concomitant]
     Active Substance: PHENYTOIN
     Indication: Seizure
  16. LAMOTRIGINE [Concomitant]
     Active Substance: LAMOTRIGINE
     Indication: Seizure

REACTIONS (7)
  - Seizure [Unknown]
  - Inability to afford medication [Unknown]
  - Therapy interrupted [Unknown]
  - Insurance issue [Unknown]
  - Product packaging issue [Unknown]
  - Physical product label issue [Unknown]
  - Product packaging quantity issue [Unknown]

NARRATIVE: CASE EVENT DATE: 20240101
